FAERS Safety Report 5932554-8 (Version None)
Quarter: 2008Q4

REPORT INFORMATION
  Report Type: 
  Country: None (occurrence: None)
  Receive Date: 20081009
  Receipt Date: 20071012
  Transmission Date: 20090506
  Serious: Yes (Other)
  Sender: FDA-Public Use
  Company Number: PHEH2007US13618

PATIENT
  Age: 75 Year
  Sex: Female
  Weight: 38.1 kg

DRUGS (15)
  1. ZOMETA [Suspect]
     Indication: METASTASES TO BONE
     Dosage: 4 MG Q4W, INTRAVENOUS
     Route: 042
     Dates: start: 20070905
  2. AROMASIN [Concomitant]
  3. AMIODARONE HCL [Concomitant]
  4. CALCIUM (CALCIUM) [Concomitant]
  5. COUMADIN [Concomitant]
  6. DIGOXIN [Concomitant]
  7. POTASSIUM CHLORIDE [Concomitant]
  8. LASIX [Concomitant]
  9. MULTIVITAMIN [Concomitant]
  10. PRILOSEC [Concomitant]
  11. TOPROL-XL [Concomitant]
  12. ACETAMINOPHEN [Concomitant]
  13. VICODIN [Concomitant]
  14. XANAX [Concomitant]
  15. ASCORBIC ACID [Concomitant]

REACTIONS (3)
  - NAUSEA [None]
  - PAIN [None]
  - VOMITING [None]
